FAERS Safety Report 4823700-8 (Version None)
Quarter: 2005Q4

REPORT INFORMATION
  Report Type: 
  Country: None (occurrence: None)
  Receive Date: 20051109
  Receipt Date: 20051101
  Transmission Date: 20060501
  Serious: Yes (Hospitalization)
  Sender: FDA-Public Use
  Company Number: 2005PK02050

PATIENT
  Sex: Female

DRUGS (1)
  1. IRESSA [Suspect]
     Indication: LUNG CANCER METASTATIC
     Route: 048
     Dates: start: 20050301

REACTIONS (3)
  - APATHY [None]
  - DISTURBANCE IN ATTENTION [None]
  - PERSONALITY CHANGE [None]
